FAERS Safety Report 10165106 (Version 1)
Quarter: 2014Q2

REPORT INFORMATION
  Report Type: Spontaneous
  Country: US (occurrence: US)
  Receive Date: 20140510
  Receipt Date: 20140510
  Transmission Date: 20141212
  Serious: No
  Sender: FDA-Public Use
  Company Number: US-BRISTOL-MYERS SQUIBB COMPANY-19729003

PATIENT
  Age: 45 Year
  Sex: Female
  Weight: 77.1 kg

DRUGS (4)
  1. BYDUREON  2MG SUSPENSION [Suspect]
     Indication: TYPE 2 DIABETES MELLITUS
     Route: 058
  2. METFORMIN [Concomitant]
  3. LOSARTAN [Concomitant]
  4. JANUVIA [Concomitant]

REACTIONS (4)
  - Injection site mass [Unknown]
  - Nausea [Not Recovered/Not Resolved]
  - Injection site pain [Unknown]
  - Product quality issue [Unknown]
